FAERS Safety Report 15353677 (Version 2)
Quarter: 2018Q4

REPORT INFORMATION
  Report Type: Spontaneous
  Country: CO (occurrence: CO)
  Receive Date: 20180905
  Receipt Date: 20181101
  Transmission Date: 20190204
  Serious: Yes (Hospitalization)
  Sender: FDA-Public Use
  Company Number: CO-GEHC-2018CSU003419

PATIENT

DRUGS (1)
  1. VISIPAQUE [Suspect]
     Active Substance: IODIXANOL
     Indication: ARTERIAL OCCLUSIVE DISEASE
     Dosage: 5MG/50ML, SINGLE
     Route: 042
     Dates: start: 20180809, end: 20180809

REACTIONS (4)
  - Respiratory depression [Recovered/Resolved]
  - Cheilitis [Recovered/Resolved]
  - Blepharitis [Recovered/Resolved]
  - Rash [Recovered/Resolved]

NARRATIVE: CASE EVENT DATE: 20180809
